FAERS Safety Report 8321463-5 (Version None)
Quarter: 2012Q2

REPORT INFORMATION
  Report Type: 
  Country: None (occurrence: None)
  Receive Date: 20120430
  Receipt Date: 20120430
  Transmission Date: 20120825
  Serious: Yes (Other)
  Sender: FDA-Public Use
  Company Number: None

PATIENT
  Age: 39 Year
  Sex: Female

DRUGS (2)
  1. HYDROMORPHONE HCL [Suspect]
     Indication: HEADACHE
     Dosage: 1.0 MG
     Route: 042
  2. HYDROMORPHONE HCL [Concomitant]

REACTIONS (1)
  - PRURITUS [None]
